FAERS Safety Report 5247014-X (Version None)
Quarter: 2007Q1

REPORT INFORMATION
  Report Type: 
  Country: None (occurrence: None)
  Receive Date: 20070226
  Receipt Date: 20070220
  Transmission Date: 20070707
  Serious: Yes (Other)
  Sender: FDA-Public Use
  Company Number: JP-GLAXOSMITHKLINE-B0458788A

PATIENT
  Age: 39 Year
  Sex: Female

DRUGS (5)
  1. PAXIL [Suspect]
     Indication: DEPRESSION
     Dosage: 20MG PER DAY
     Route: 048
     Dates: start: 20060913
  2. PREDONINE [Concomitant]
     Dosage: 5MG TWICE PER DAY
     Route: 048
  3. GASTER D [Concomitant]
     Dosage: 20MG TWICE PER DAY
     Route: 048
  4. PROMAC [Concomitant]
     Route: 048
  5. LENDORMIN [Concomitant]
     Dosage: .25MG PER DAY
     Route: 048

REACTIONS (1)
  - SELF MUTILATION [None]
